FAERS Safety Report 11128970 (Version 3)
Quarter: 2015Q3

REPORT INFORMATION
  Report Type: Report from Study
  Country: TW (occurrence: TW)
  Receive Date: 20150521
  Receipt Date: 20150707
  Transmission Date: 20151125
  Serious: Yes (Other)
  Sender: FDA-Public Use
  Company Number: TW-ABBVIE-15K-153-1372942-00

PATIENT
  Age: 58 Year
  Sex: Male
  Weight: 51 kg

DRUGS (1)
  1. HUMIRA [Suspect]
     Active Substance: ADALIMUMAB
     Indication: ANKYLOSING SPONDYLITIS
     Route: 058
     Dates: start: 20140702, end: 20150225

REACTIONS (5)
  - Chronic obstructive pulmonary disease [Not Recovered/Not Resolved]
  - Lung neoplasm [Not Recovered/Not Resolved]
  - Bronchiectasis [Unknown]
  - Pneumonitis [Not Recovered/Not Resolved]
  - Emphysema [Not Recovered/Not Resolved]

NARRATIVE: CASE EVENT DATE: 20150313
